FAERS Safety Report 6892326-7 (Version None)
Quarter: 2010Q3

REPORT INFORMATION
  Report Type: 
  Country: None (occurrence: None)
  Receive Date: 20100731
  Receipt Date: 20080408
  Transmission Date: 20110219
  Serious: No
  Sender: FDA-Public Use
  Company Number: US-PFIZER INC-2007075138

PATIENT
  Sex: Male

DRUGS (5)
  1. AZULFIDINE [Suspect]
     Indication: RHEUMATOID ARTHRITIS
     Route: 048
     Dates: start: 20070621
  2. MICARDIS [Concomitant]
  3. STRESSTABS [Concomitant]
  4. VITAMINS [Concomitant]
  5. HUMIRA [Concomitant]

REACTIONS (5)
  - COUGH [None]
  - FATIGUE [None]
  - HYPERHIDROSIS [None]
  - PYREXIA [None]
  - SINUS HEADACHE [None]
